FAERS Safety Report 9417466 (Version 1)
Quarter: 2013Q3

REPORT INFORMATION
  Report Type: Spontaneous
  Country: US (occurrence: US)
  Receive Date: 20130724
  Receipt Date: 20130724
  Transmission Date: 20140515
  Serious: No
  Sender: FDA-Public Use
  Company Number: US-MYLANLABS-2013S1009379

PATIENT
  Age: 68 Year
  Sex: Female
  Weight: 80.74 kg

DRUGS (6)
  1. TRIAMTERENE AND HYDROCHLOROTHIAZIDE CAPSULES [Suspect]
     Indication: BLOOD PRESSURE INCREASED
     Route: 048
  2. ISOSORBIDE MONONITRATE [Suspect]
     Indication: ANGINA PECTORIS
     Route: 048
     Dates: start: 2003
  3. SIMVASTATIN [Suspect]
     Indication: BLOOD CHOLESTEROL INCREASED
     Route: 048
     Dates: start: 201207
  4. DIVALPROEX SODIUM [Suspect]
     Indication: MIGRAINE
     Route: 048
     Dates: start: 2003
  5. GABAPENTIN [Suspect]
     Indication: NEUROPATHY PERIPHERAL
     Route: 048
  6. SYNTHROID [Suspect]
     Indication: HYPOTHYROIDISM
     Route: 048

REACTIONS (3)
  - Dysgeusia [Not Recovered/Not Resolved]
  - Pain [Not Recovered/Not Resolved]
  - Skin odour abnormal [Not Recovered/Not Resolved]
